FAERS Safety Report 23611111 (Version 1)
Quarter: 2024Q1

REPORT INFORMATION
  Report Type: Spontaneous
  Country: US (occurrence: None)
  Receive Date: 20240308
  Receipt Date: 20240308
  Transmission Date: 20240409
  Serious: Yes (Death)
  Sender: FDA-Public Use
  Company Number: None

PATIENT
  Age: 62 Year
  Sex: Female
  Weight: 60 kg

DRUGS (6)
  1. CYCLOPHOSPHAMIDE [Suspect]
     Active Substance: CYCLOPHOSPHAMIDE
  2. CYTARABINE [Concomitant]
  3. SPRYCEL [Concomitant]
     Active Substance: DASATINIB
  4. DOXORUBICIN HYDROCHLORIDE [Concomitant]
  5. METHOTREXATE [Concomitant]
  6. VINCRISTINE SULFATE [Concomitant]

REACTIONS (2)
  - Disease progression [None]
  - Nervous system disorder [None]

NARRATIVE: CASE EVENT DATE: 20240113
